FAERS Safety Report 8300106-0 (Version None)
Quarter: 2012Q2

REPORT INFORMATION
  Report Type: 
  Country: None (occurrence: None)
  Receive Date: 20120420
  Receipt Date: 20120416
  Transmission Date: 20120825
  Serious: No
  Sender: FDA-Public Use
  Company Number: US-PFIZER INC-2012075454

PATIENT
  Age: 65 Year

DRUGS (1)
  1. ATORVASTATIN CALCIUM [Suspect]
     Dosage: 20 MG, UNK

REACTIONS (5)
  - DYSPEPSIA [None]
  - ABDOMINAL DISTENSION [None]
  - FLATULENCE [None]
  - ABDOMINAL DISCOMFORT [None]
  - ERUCTATION [None]
